FAERS Safety Report 4986795-7 (Version None)
Quarter: 2006Q2

REPORT INFORMATION
  Report Type: 
  Country: None (occurrence: None)
  Receive Date: 20060428
  Receipt Date: 20060418
  Transmission Date: 20061013
  Serious: Yes (Death, Other)
  Sender: FDA-Public Use
  Company Number: ES-MERCK-0604USA03265

PATIENT
  Age: 46 Year
  Sex: Male

DRUGS (3)
  1. DECADRON [Suspect]
     Indication: MULTIPLE MYELOMA
     Route: 048
     Dates: start: 20040115
  2. VINCRISTINE SULFATE [Suspect]
     Indication: MULTIPLE MYELOMA
     Route: 041
     Dates: start: 20040115
  3. DOXORUBICIN [Suspect]
     Indication: MULTIPLE MYELOMA
     Route: 041
     Dates: start: 20040115

REACTIONS (3)
  - LIGHT CHAIN DISEASE [None]
  - MULTI-ORGAN FAILURE [None]
  - RENAL IMPAIRMENT [None]
